FAERS Safety Report 8943498 (Version 1)
Quarter: 2012Q4

REPORT INFORMATION
  Report Type: 
  Country: FR (occurrence: FR)
  Receive Date: 20121204
  Receipt Date: 20121204
  Transmission Date: 20130627
  Serious: Yes (Death, Hospitalization)
  Sender: FDA-Public Use
  Company Number: PHHY2012FR110116

PATIENT
  Age: 72 Year
  Sex: Male

DRUGS (19)
  1. ESIDREX [Suspect]
     Indication: HYPERTENSION
     Dosage: 0.5 DF, QD
     Route: 048
     Dates: end: 20120827
  2. ZOLPIDEM [Suspect]
     Dosage: 1 DF, QD
     Route: 048
  3. INSPRA [Suspect]
     Indication: CARDIAC FAILURE
     Dosage: 25 mg, QD
     Route: 048
  4. INSPRA [Suspect]
     Dosage: 12.5 mg, daily
  5. BISOCE [Suspect]
     Dosage: 1 DF, QD
     Route: 048
  6. IMOVANE [Suspect]
     Dosage: 1.5 DF, QD
     Route: 048
     Dates: end: 20120827
  7. TAHOR [Suspect]
     Dosage: 20 mg, UNK
     Route: 048
  8. PREVISCAN [Suspect]
     Dosage: 20 mg, UNK
     Route: 048
  9. LASILIX [Concomitant]
     Dosage: 500 mg, UNK
     Route: 048
  10. LASILIX [Concomitant]
     Dosage: 40 mg
     Route: 048
  11. GLIMEPIRIDE [Concomitant]
  12. XELEVIA [Concomitant]
     Dosage: 100 mg, UNK
     Route: 048
  13. PERMIXON [Concomitant]
     Dosage: 160 mg, UNK
     Route: 048
  14. NOVONORM [Concomitant]
     Dosage: 2 mg, UNK
     Route: 048
  15. PANTOPRAZOLE [Concomitant]
  16. DIFFU K [Concomitant]
     Route: 048
  17. ZYLORIC [Concomitant]
     Dosage: 100 mg, UNK
     Route: 048
  18. STABLON [Concomitant]
     Dosage: 12.5 mg, UNK
     Route: 048
  19. DOLIPRANE [Concomitant]

REACTIONS (7)
  - Cerebral haemorrhage [Fatal]
  - Loss of consciousness [Fatal]
  - Malaise [Fatal]
  - Fall [Fatal]
  - Head injury [Unknown]
  - Orthostatic hypotension [Unknown]
  - Overdose [Unknown]
